FAERS Safety Report 7585541-0 (Version None)
Quarter: 2011Q3

REPORT INFORMATION
  Report Type: 
  Country: None (occurrence: None)
  Receive Date: 20110701
  Receipt Date: 20110623
  Transmission Date: 20111222
  Serious: Yes (Hospitalization)
  Sender: FDA-Public Use
  Company Number: US-ABBOTT-11P-163-0734764-00

PATIENT
  Sex: Male
  Weight: 90.8 kg

DRUGS (10)
  1. HUMIRA [Suspect]
     Indication: CROHN'S DISEASE
     Dates: start: 20100101, end: 20110623
  2. ASACOL [Concomitant]
     Indication: CROHN'S DISEASE
  3. LORTAB [Concomitant]
     Indication: PAIN
  4. TRAMADOL HCL [Concomitant]
     Indication: PAIN
  5. HUMIRA [Suspect]
     Dates: start: 20110623
  6. BEXILANT [Concomitant]
     Indication: GASTROOESOPHAGEAL REFLUX DISEASE
  7. ENTOCORT EC [Concomitant]
     Indication: CROHN'S DISEASE
  8. IMODIUM [Concomitant]
     Indication: CROHN'S DISEASE
  9. POTASSIUM [Concomitant]
     Indication: MINERAL SUPPLEMENTATION
  10. DICYCLOMINE [Concomitant]
     Indication: CROHN'S DISEASE

REACTIONS (10)
  - PERNICIOUS ANAEMIA [None]
  - ERUCTATION [None]
  - DYSGEUSIA [None]
  - QUADRIPLEGIA [None]
  - ARTHROPATHY [None]
  - COLITIS [None]
  - CROHN'S DISEASE [None]
  - BLOOD POTASSIUM DECREASED [None]
  - ABDOMINAL PAIN LOWER [None]
  - VOMITING [None]
